FAERS Safety Report 9360937 (Version 4)
Quarter: 2013Q3

REPORT INFORMATION
  Report Type: Spontaneous
  Country: US (occurrence: None)
  Receive Date: 20130618
  Receipt Date: 20130913
  Transmission Date: 20140515
  Serious: Yes (Hospitalization)
  Sender: FDA-Public Use
  Company Number: 2013SGN00350

PATIENT
  Age: 44 Year
  Sex: Female

DRUGS (2)
  1. BRENTUXIMAB VEDOTIN [Suspect]
     Indication: MYCOSIS FUNGOIDES
     Dosage: Q21D
     Route: 042
     Dates: start: 20130424, end: 20130424
  2. AVALOX (MOXIFLOXACIN HYDROCHLORIDE) [Concomitant]

REACTIONS (14)
  - Aspartate aminotransferase increased [None]
  - Abdominal pain [None]
  - Nausea [None]
  - Vomiting [None]
  - Abdominal distension [None]
  - Blood potassium decreased [None]
  - Hepatic enzyme increased [None]
  - Fatigue [None]
  - Decreased appetite [None]
  - Pyrexia [None]
  - Alanine aminotransferase increased [None]
  - Infusion related reaction [None]
  - Hepatobiliary scan abnormal [None]
  - Cholecystectomy [None]
